FAERS Safety Report 8818981 (Version 1)
Quarter: 2012Q4

REPORT INFORMATION
  Report Type: 
  Country: BR (occurrence: BR)
  Receive Date: 20121001
  Receipt Date: 20121001
  Transmission Date: 20130627
  Serious: Yes (Other)
  Sender: FDA-Public Use
  Company Number: PHHY2012BR082700

PATIENT
  Age: 74 Year
  Sex: Male
  Weight: 82 kg

DRUGS (8)
  1. NATEGLINIDE [Suspect]
     Dosage: 120mg/850mg
  2. TENORETIC [Concomitant]
  3. CLOPIDOGREL [Concomitant]
  4. ROSUVASTATIN [Concomitant]
  5. ACETYLSALICYLIC ACID [Concomitant]
  6. VITAMINS [Concomitant]
  7. LANTUS 32 [Concomitant]
     Dosage: 32 IU, at night
  8. INSULIN [Concomitant]
     Dosage: 4 to 7 IU, UNK

REACTIONS (7)
  - Prostate cancer [Unknown]
  - Mitral valve incompetence [Unknown]
  - Blood glucose increased [Unknown]
  - Glycosylated haemoglobin increased [Unknown]
  - Carotid artery stenosis [None]
  - Decreased vibratory sense [None]
  - Sensory disturbance [None]
